FAERS Safety Report 23385183 (Version 2)
Quarter: 2024Q1

REPORT INFORMATION
  Report Type: Spontaneous
  Country: US (occurrence: None)
  Receive Date: 20240110
  Receipt Date: 20240118
  Transmission Date: 20240410
  Serious: Yes (Other)
  Sender: FDA-Public Use
  Company Number: US-ROCHE-3487731

PATIENT
  Sex: Female

DRUGS (7)
  1. XOLAIR [Suspect]
     Active Substance: OMALIZUMAB
     Indication: Asthma
     Dosage: (STRENGTH: 150 MG/ML)?INJECT TWO 150 MG SYRINGES ALONG WITH ONE 75 MG SYRINGE
     Route: 058
     Dates: start: 20230127
  2. XOLAIR [Suspect]
     Active Substance: OMALIZUMAB
  3. XOLAIR [Suspect]
     Active Substance: OMALIZUMAB
  4. PREDNISONE [Concomitant]
     Active Substance: PREDNISONE
  5. BENZONATATE [Concomitant]
     Active Substance: BENZONATATE
  6. DUPIXENT [Concomitant]
     Active Substance: DUPILUMAB
     Dosage: DOSE: 300 MG/2ML SYR (4=2)
  7. MONTELUKAST [Concomitant]
     Active Substance: MONTELUKAST SODIUM

REACTIONS (1)
  - Asthma [Unknown]
